FAERS Safety Report 11278152 (Version 1)
Quarter: 2015Q3

REPORT INFORMATION
  Report Type: Spontaneous
  Country: US (occurrence: US)
  Receive Date: 20150717
  Receipt Date: 20150717
  Transmission Date: 20151125
  Serious: No
  Sender: FDA-Public Use
  Company Number: US-JNJFOC-20150621255

PATIENT
  Age: 84 Year
  Sex: Female
  Weight: 44 kg

DRUGS (4)
  1. NORVASC [Concomitant]
     Active Substance: AMLODIPINE BESYLATE
     Indication: BLOOD PRESSURE MEASUREMENT
     Route: 065
     Dates: start: 2010
  2. RANITIDINE [Concomitant]
     Active Substance: RANITIDINE\RANITIDINE HYDROCHLORIDE
     Indication: GASTRIC DISORDER
     Route: 065
     Dates: start: 2010
  3. TYLENOL WITH CODEINE [Suspect]
     Active Substance: ACETAMINOPHEN\CODEINE PHOSPHATE
     Indication: ARTHRITIS
     Dosage: 1 TABLET/ TABLETS/ 300MG/30MG/ UP TO THREE TIMES A DAY/ PO - ORAL
     Route: 048
     Dates: start: 2012
  4. ALL OTHER NON-THERAPEUTIC [Suspect]
     Active Substance: UNSPECIFIED INGREDIENT
     Indication: ARTHRITIS
     Route: 065
     Dates: start: 2015

REACTIONS (1)
  - Drug dose omission [Unknown]

NARRATIVE: CASE EVENT DATE: 201505
